FAERS Safety Report 4546869-1 (Version None)
Quarter: 2005Q1

REPORT INFORMATION
  Report Type: 
  Country: None (occurrence: None)
  Receive Date: 20050106
  Receipt Date: 20040401
  Transmission Date: 20050727
  Serious: Yes (Hospitalization, Disabling)
  Sender: FDA-Public Use
  Company Number: US-MERCK-0404USA00096

PATIENT
  Age: 53 Year
  Sex: Male
  Weight: 74 kg

DRUGS (16)
  1. VIOXX [Suspect]
     Indication: ARTHRALGIA
     Route: 048
     Dates: start: 19990601, end: 20020630
  2. VIOXX [Suspect]
     Route: 048
     Dates: start: 19990601, end: 20020630
  3. VIOXX [Suspect]
     Route: 048
     Dates: start: 19990601, end: 20020630
  4. VIOXX [Suspect]
     Route: 048
     Dates: start: 19990601, end: 20020630
  5. VIAGRA [Concomitant]
     Indication: ERECTILE DYSFUNCTION
     Route: 065
     Dates: start: 19990101
  6. AMOXICILLIN [Concomitant]
     Route: 065
  7. PLAVIX [Concomitant]
     Route: 065
     Dates: start: 20020701
  8. AMBIEN [Concomitant]
     Indication: SLEEP DISORDER THERAPY
     Route: 065
     Dates: start: 19991001, end: 20020701
  9. TRAZODONE HYDROCHLORIDE [Concomitant]
     Route: 065
     Dates: start: 20011101, end: 20020501
  10. IBUPROFEN [Concomitant]
     Route: 065
  11. ZANAFLEX [Concomitant]
     Indication: MUSCLE RELAXANT THERAPY
     Route: 065
     Dates: start: 20000201, end: 20010901
  12. ALTACE [Concomitant]
     Route: 065
     Dates: start: 20020701
  13. DIAZEPAM [Concomitant]
     Route: 065
  14. HYDROCODONE BITARTRATE [Concomitant]
     Route: 065
  15. HYDROCODONE BITARTRATE [Concomitant]
     Route: 065
     Dates: start: 19980101, end: 19990101
  16. OXYCONTIN [Concomitant]
     Route: 065
     Dates: start: 19980101, end: 19990101

REACTIONS (16)
  - ACUTE MYOCARDIAL INFARCTION [None]
  - ANGINA PECTORIS [None]
  - ARTHRALGIA [None]
  - ARTHROPATHY [None]
  - BLOOD CHOLESTEROL INCREASED [None]
  - BURSITIS [None]
  - CORONARY ARTERY DISEASE [None]
  - CORONARY ARTERY STENOSIS [None]
  - DEPRESSION [None]
  - ERECTILE DYSFUNCTION [None]
  - HYPERCHOLESTEROLAEMIA [None]
  - HYPERTENSION [None]
  - LACERATION [None]
  - PERONEAL NERVE PALSY [None]
  - PLEURITIC PAIN [None]
  - VENTRICULAR DYSFUNCTION [None]
